FAERS Safety Report 6148089-6 (Version None)
Quarter: 2009Q2

REPORT INFORMATION
  Report Type: 
  Country: None (occurrence: None)
  Receive Date: 20090408
  Receipt Date: 20090406
  Transmission Date: 20091009
  Serious: Yes (Hospitalization)
  Sender: FDA-Public Use
  Company Number: B0569039A

PATIENT
  Sex: Male

DRUGS (3)
  1. NABUCOX [Suspect]
     Indication: DRUG USE FOR UNKNOWN INDICATION
     Dosage: 1U PER DAY
     Route: 048
     Dates: start: 20081128, end: 20081202
  2. PREVISCAN [Suspect]
     Indication: DRUG USE FOR UNKNOWN INDICATION
     Route: 048
     Dates: end: 20081202
  3. IXPRIM [Suspect]
     Indication: FLANK PAIN
     Dosage: 3U PER DAY
     Route: 048
     Dates: start: 20081128, end: 20081202

REACTIONS (2)
  - DRUG INTERACTION [None]
  - MUSCLE HAEMORRHAGE [None]
